FAERS Safety Report 5822552-7 (Version None)
Quarter: 2008Q3

REPORT INFORMATION
  Report Type: 
  Country: None (occurrence: None)
  Receive Date: 20080725
  Receipt Date: 20080103
  Transmission Date: 20090109
  Serious: No
  Sender: FDA-Public Use
  Company Number: US-AMGEN-KDL259240

PATIENT
  Sex: Male
  Weight: 90.8 kg

DRUGS (5)
  1. PROCRIT [Suspect]
     Indication: ANAEMIA OF MALIGNANT DISEASE
     Dates: start: 20071226
  2. ENALAPRIL MALEATE [Concomitant]
     Dates: start: 20070101
  3. GLEEVEC [Concomitant]
     Dates: start: 20060101
  4. MOMETASONE FUROATE [Concomitant]
     Dates: start: 20070101
  5. SPIRIVA [Concomitant]
     Dates: start: 20070101

REACTIONS (2)
  - NAUSEA [None]
  - VOMITING [None]
